FAERS Safety Report 19151050 (Version 1)
Quarter: 2021Q2

REPORT INFORMATION
  Report Type: Spontaneous
  Country: PL (occurrence: PL)
  Receive Date: 20210419
  Receipt Date: 20210419
  Transmission Date: 20210717
  Serious: Yes (Life-Threatening, Hospitalization, Disabling, Other)
  Sender: FDA-Public Use
  Company Number: PL-TEVA-2021-PL-1901008

PATIENT
  Age: 44 Year
  Sex: Male
  Weight: 71 kg

DRUGS (5)
  1. OZONE [Concomitant]
     Active Substance: OZONE
     Dosage: 6 TIMES BEFORE LEVOXA AND 6 TIMES DURING ADMINISTRATION LEVOXA
  2. CLEXANE FORTE [Concomitant]
     Active Substance: ENOXAPARIN SODIUM
     Dosage: 120 MG
     Dates: start: 20150128, end: 20150206
  3. LEVOXA [Suspect]
     Active Substance: LEVOFLOXACIN
     Indication: POLLAKIURIA
     Dosage: UNIT DOSE :500 MG ,DOSE: FIRST 3 DAYS 500 MG EVERY 8 HOURS NEXT 500 MG ONCE A DAY
     Route: 048
     Dates: start: 20150128, end: 20150202
  4. NYSTATYNA 500 000 J.M. [Concomitant]
     Dates: start: 20150221, end: 20150225
  5. DITROPAN [Concomitant]
     Active Substance: OXYBUTYNIN CHLORIDE
     Dates: start: 20150126, end: 20150215

REACTIONS (21)
  - Dyspnoea [Unknown]
  - Dementia [Unknown]
  - Muscular weakness [Unknown]
  - Skin disorder [Unknown]
  - Neuropathy peripheral [Unknown]
  - Weight decreased [Unknown]
  - Photosensitivity reaction [Unknown]
  - Pain [Unknown]
  - Anxiety [Unknown]
  - Tendon disorder [Unknown]
  - Sleep disorder [Unknown]
  - Confusional state [Unknown]
  - Gastric disorder [Unknown]
  - Arthralgia [Unknown]
  - Hyperacusis [Unknown]
  - Paraesthesia [Unknown]
  - Hypoaesthesia [Unknown]
  - Fatigue [Unknown]
  - Nervous system disorder [Unknown]
  - Visual impairment [Unknown]
  - Speech disorder [Unknown]

NARRATIVE: CASE EVENT DATE: 20150202
